FAERS Safety Report 7901217-1 (Version None)
Quarter: 2011Q4

REPORT INFORMATION
  Report Type: 
  Country: None (occurrence: None)
  Receive Date: 20111108
  Receipt Date: 20111025
  Transmission Date: 20120403
  Serious: Yes (Other)
  Sender: FDA-Public Use
  Company Number: PHHY2010BE04923

PATIENT
  Sex: Female

DRUGS (10)
  1. CARVEDILOL [Concomitant]
     Dosage: 25 TWICE DAILY
  2. CORDARONE [Concomitant]
     Indication: ATRIAL FIBRILLATION
  3. BETASERC [Concomitant]
  4. SINTROM [Concomitant]
  5. MEDROL [Concomitant]
     Indication: RHEUMATOID ARTHRITIS
  6. RASILEZ [Suspect]
     Indication: HYPERTENSION
     Dosage: 300 MG, QD
     Route: 048
     Dates: end: 20100101
  7. IRBESARTAN AND HYDROCHLOROTHIAZIDE [Concomitant]
  8. ACCUPRIL [Concomitant]
  9. TERAZOSABB [Concomitant]
     Dosage: 5MG
  10. TRAZODONE HCL [Concomitant]

REACTIONS (2)
  - LIVER FUNCTION TEST ABNORMAL [None]
  - FATIGUE [None]
